FAERS Safety Report 7766658-4 (Version None)
Quarter: 2011Q3

REPORT INFORMATION
  Report Type: 
  Country: None (occurrence: None)
  Receive Date: 20110922
  Receipt Date: 20110912
  Transmission Date: 20111222
  Serious: Yes (Other)
  Sender: FDA-Public Use
  Company Number: JP-JNJFOC-20110905415

PATIENT
  Age: 65 Year
  Sex: Female

DRUGS (7)
  1. FENTANYL CITRATE [Suspect]
     Route: 062
     Dates: start: 20110831
  2. LANSOPRAZOLE [Concomitant]
     Indication: HYPERCHLORHYDRIA
     Route: 065
  3. FENTANYL CITRATE [Suspect]
     Indication: TRIGEMINAL NEURALGIA
     Route: 062
  4. CORTRIL [Concomitant]
     Indication: ADRENOCORTICAL STEROID THERAPY
     Route: 065
  5. DIAZEPAM [Concomitant]
     Route: 065
  6. LEVOTHYROXINE SODIUM [Concomitant]
     Indication: HYPOTHYROIDISM
     Route: 048
  7. PREDNISOLONE [Concomitant]
     Indication: INFLAMMATION
     Route: 065

REACTIONS (2)
  - WITHDRAWAL SYNDROME [None]
  - AGGRESSION [None]
